FAERS Safety Report 4479829-X (Version None)
Quarter: 2004Q3

REPORT INFORMATION
  Report Type: 
  Country: None (occurrence: None)
  Receive Date: 20040923
  Receipt Date: 20040524
  Transmission Date: 20050211
  Serious: No
  Sender: FDA-Public Use
  Company Number: USA040568356

PATIENT
  Age: 58 Year
  Sex: Male

DRUGS (2)
  1. FORTEO [Suspect]
     Indication: OSTEOPOROSIS
     Dates: start: 20031201
  2. CALCIUM GLUCONATE [Concomitant]

REACTIONS (6)
  - BACK PAIN [None]
  - DIZZINESS [None]
  - INJECTION SITE HAEMORRHAGE [None]
  - INJECTION SITE PAIN [None]
  - NAUSEA [None]
  - PAIN IN EXTREMITY [None]
